FAERS Safety Report 4368616-9 (Version None)
Quarter: 2004Q2

REPORT INFORMATION
  Report Type: 
  Country: None (occurrence: None)
  Receive Date: 20040528
  Receipt Date: 20040415
  Transmission Date: 20050107
  Serious: Yes (Hospitalization)
  Sender: FDA-Public Use
  Company Number: 236402

PATIENT
  Sex: Male

DRUGS (1)
  1. MIXTARD HUMAN 70/30 [Suspect]
     Indication: ILL-DEFINED DISORDER

REACTIONS (1)
  - LOWER LIMB FRACTURE [None]
